FAERS Safety Report 18741757 (Version 1)
Quarter: 2021Q1

REPORT INFORMATION
  Report Type: Spontaneous
  Country: US (occurrence: US)
  Receive Date: 20210114
  Receipt Date: 20210114
  Transmission Date: 20210419
  Serious: No
  Sender: FDA-Public Use
  Company Number: US-AERIE-2020-001781

PATIENT
  Age: 54 Year
  Sex: Female

DRUGS (5)
  1. LATANOPROSTENE BUNOD [Concomitant]
     Active Substance: LATANOPROSTENE BUNOD
     Indication: NORMAL TENSION GLAUCOMA
     Dosage: UNK, OU, QHS
     Route: 047
  2. BRIMONIDINE [Suspect]
     Active Substance: BRIMONIDINE TARTRATE
     Indication: NORMAL TENSION GLAUCOMA
     Dosage: UNK UNK, BID
     Route: 047
  3. METHAZOLAMIDE. [Suspect]
     Active Substance: METHAZOLAMIDE
     Indication: NORMAL TENSION GLAUCOMA
     Dosage: UNK UNK, BID
     Route: 048
  4. RHOPRESSA [Suspect]
     Active Substance: NETARSUDIL MESYLATE
     Indication: NORMAL TENSION GLAUCOMA
     Dosage: UNK, OU, QHS
     Route: 047
  5. DORZOLAMIDE/TIMOLOL [DORZOLAMIDE;TIMOLOL MALEATE] [Suspect]
     Active Substance: DORZOLAMIDE HYDROCHLORIDE\TIMOLOL MALEATE
     Indication: NORMAL TENSION GLAUCOMA
     Dosage: UNK, OU, TID
     Route: 047

REACTIONS (3)
  - Lacrimation increased [Recovered/Resolved]
  - Off label use [Unknown]
  - Conjunctival hyperaemia [Recovered/Resolved]

NARRATIVE: CASE EVENT DATE: 2019
